FAERS Safety Report 15633253 (Version 2)
Quarter: 2018Q4

REPORT INFORMATION
  Report Type: Spontaneous
  Country: FR (occurrence: FR)
  Receive Date: 20181119
  Receipt Date: 20181205
  Transmission Date: 20190205
  Serious: Yes (Hospitalization, Other)
  Sender: FDA-Public Use
  Company Number: FR-JNJFOC-20181123856

PATIENT
  Age: 82 Year
  Sex: Male

DRUGS (11)
  1. KALEORID [Concomitant]
     Active Substance: POTASSIUM CHLORIDE
     Route: 065
  2. LEVOTHYROX [Concomitant]
     Active Substance: LEVOTHYROXINE
     Dosage: 50 UNK
     Route: 065
  3. DUOPLAVIN [Concomitant]
     Active Substance: ASPIRIN\CLOPIDOGREL
     Route: 065
  4. BISOPROLOL [Concomitant]
     Active Substance: BISOPROLOL
     Route: 065
  5. FORTZAAR [Concomitant]
     Active Substance: HYDROCHLOROTHIAZIDE\LOSARTAN POTASSIUM
     Route: 065
  6. OMEPRAZOLE. [Concomitant]
     Active Substance: OMEPRAZOLE
     Route: 065
  7. NEURONTIN [Concomitant]
     Active Substance: GABAPENTIN
     Route: 065
  8. XARELTO [Suspect]
     Active Substance: RIVAROXABAN
     Indication: CORONARY ARTERY DISEASE
     Dosage: XARELTO 15 MG
     Route: 048
     Dates: start: 2018, end: 20181010
  9. SIMVASTATINE [Concomitant]
     Active Substance: SIMVASTATIN
     Route: 065
  10. EUPANTOL [Concomitant]
     Active Substance: PANTOPRAZOLE SODIUM
     Route: 065
  11. XARELTO [Suspect]
     Active Substance: RIVAROXABAN
     Indication: CORONARY ARTERY DISEASE
     Route: 048
     Dates: start: 2018, end: 2018

REACTIONS (7)
  - Stent placement [Unknown]
  - Chest discomfort [Not Recovered/Not Resolved]
  - Anaemia [Recovering/Resolving]
  - Prothrombin time prolonged [Recovered/Resolved]
  - Gastric haemorrhage [Unknown]
  - International normalised ratio increased [Recovered/Resolved]
  - Off label use [Unknown]
